FAERS Safety Report 7375305-5 (Version None)
Quarter: 2011Q1

REPORT INFORMATION
  Report Type: 
  Country: None (occurrence: None)
  Receive Date: 20110315
  Receipt Date: 20110228
  Transmission Date: 20110831
  Serious: Yes (Other)
  Sender: FDA-Public Use
  Company Number: 201110220

PATIENT
  Age: 22 Year
  Sex: Female

DRUGS (1)
  1. LIORESAL [Suspect]
     Indication: MUSCLE SPASTICITY
     Dosage: DAILY,INTRATHECAL
     Route: 037

REACTIONS (6)
  - WOUND [None]
  - DRUG WITHDRAWAL SYNDROME [None]
  - INFECTION [None]
  - DEVICE BREAKAGE [None]
  - CSF TEST ABNORMAL [None]
  - MEDICAL DEVICE COMPLICATION [None]
